FAERS Safety Report 14180807 (Version 3)
Quarter: 2018Q1

REPORT INFORMATION
  Report Type: Spontaneous
  Country: JP (occurrence: JP)
  Receive Date: 20171110
  Receipt Date: 20180223
  Transmission Date: 20180508
  Serious: Yes (Other)
  Sender: FDA-Public Use
  Company Number: JP-009507513-1711JPN000768J

PATIENT
  Age: 91 Year
  Sex: Male
  Weight: 67 kg

DRUGS (1)
  1. DESALEX TABLETS 5MG [Suspect]
     Active Substance: DESLORATADINE
     Indication: PEMPHIGOID
     Dosage: 5 MG, QD
     Route: 048
     Dates: start: 20170829, end: 20170831

REACTIONS (1)
  - Anaphylactic shock [Recovered/Resolved]

NARRATIVE: CASE EVENT DATE: 20170831
